FAERS Safety Report 7259315-4 (Version None)
Quarter: 2011Q1

REPORT INFORMATION
  Report Type: 
  Country: None (occurrence: None)
  Receive Date: 20110129
  Receipt Date: 20100823
  Transmission Date: 20110831
  Serious: Yes (Other)
  Sender: FDA-Public Use
  Company Number: US-ABBOTT-10P-163-0665491-00

PATIENT
  Sex: Female
  Weight: 83.536 kg

DRUGS (4)
  1. METHOTREXATE [Concomitant]
     Indication: RHEUMATOID ARTHRITIS
     Dates: end: 20091101
  2. HUMIRA [Suspect]
     Indication: RHEUMATOID ARTHRITIS
     Dates: start: 20080101, end: 20091101
  3. HYDROCHLOROTHIAZIDE [Concomitant]
     Indication: HYPERTENSION
  4. METHOTREXATE [Concomitant]
     Dates: start: 20100822

REACTIONS (3)
  - BREAST CANCER [None]
  - RHEUMATOID ARTHRITIS [None]
  - METASTASES TO LYMPH NODES [None]
